FAERS Safety Report 17682416 (Version 2)
Quarter: 2020Q2

REPORT INFORMATION
  Report Type: Report from Study
  Country: GB (occurrence: GB)
  Receive Date: 20200418
  Receipt Date: 20200516
  Transmission Date: 20200714
  Serious: Yes (Hospitalization, Other)
  Sender: FDA-Public Use
  Company Number: GB-SAMSUNG BIOEPIS-SB-2020-08712

PATIENT
  Age: 29 Year
  Sex: Female

DRUGS (1)
  1. IMRALDI [Suspect]
     Active Substance: ADALIMUMAB
     Indication: PSORIATIC ARTHROPATHY
     Route: 058
     Dates: start: 20200122

REACTIONS (12)
  - Weight decreased [Unknown]
  - Amenorrhoea [Unknown]
  - Tinea infection [Unknown]
  - Body temperature fluctuation [Recovering/Resolving]
  - Gastroenteritis [Unknown]
  - Eye infection [Unknown]
  - Infection [Unknown]
  - Epistaxis [Unknown]
  - Vulval abscess [Unknown]
  - Loss of consciousness [Unknown]
  - Pyrexia [Unknown]
  - Fungal infection [Unknown]
